FAERS Safety Report 9549856 (Version 2)
Quarter: 2013Q3

REPORT INFORMATION
  Report Type: Report from Study
  Country: GB (occurrence: GB)
  Receive Date: 20130924
  Receipt Date: 20130924
  Transmission Date: 20140515
  Serious: Yes (Hospitalization)
  Sender: FDA-Public Use
  Company Number: GB-ABBVIE-13P-167-1083391-00

PATIENT
  Age: 25 Year
  Sex: Female
  Weight: 46.9 kg

DRUGS (2)
  1. HUMIRA [Suspect]
     Indication: PSORIASIS
     Dates: start: 20110727
  2. HUMIRA [Suspect]
     Route: 058
     Dates: start: 20120210

REACTIONS (4)
  - Pyrexia [Unknown]
  - Musculoskeletal chest pain [Unknown]
  - Psoriasis [Recovered/Resolved with Sequelae]
  - Psoriatic arthropathy [Unknown]
